FAERS Safety Report 9574684 (Version 1)
Quarter: 2013Q4

REPORT INFORMATION
  Report Type: Spontaneous
  Country: US (occurrence: US)
  Receive Date: 20131001
  Receipt Date: 20131001
  Transmission Date: 20140711
  Serious: No
  Sender: FDA-Public Use
  Company Number: US-PFIZER INC-2013278063

PATIENT
  Age: 60 Year
  Sex: Male

DRUGS (2)
  1. LIPITOR [Suspect]
     Indication: ANGIOGRAM
     Dosage: HIGH, UNK
  2. LIPITOR [Suspect]
     Dosage: 10 MG, UNK
     Dates: end: 201308

REACTIONS (7)
  - Fall [Unknown]
  - Muscular weakness [Unknown]
  - Muscle atrophy [Unknown]
  - Musculoskeletal disorder [Unknown]
  - Arthropathy [Unknown]
  - Asthenia [Unknown]
  - Hypersomnia [Unknown]
